FAERS Safety Report 19113450 (Version 1)
Quarter: 2021Q2

REPORT INFORMATION
  Report Type: Spontaneous
  Country: US (occurrence: US)
  Receive Date: 20210409
  Receipt Date: 20210409
  Transmission Date: 20210717
  Serious: No
  Sender: FDA-Public Use
  Company Number: US-JNJFOC-20210338707

PATIENT
  Age: 69 Year
  Sex: Female

DRUGS (1)
  1. TYLENOL 8 HR ARTHRITIS PAIN [Suspect]
     Active Substance: ACETAMINOPHEN
     Indication: ARTHRALGIA
     Dosage: 2 TABLETS JUST LAST NIGHT
     Route: 065
     Dates: start: 20210317

REACTIONS (5)
  - Diarrhoea [Recovered/Resolved]
  - Chills [Not Recovered/Not Resolved]
  - Asthenia [Not Recovered/Not Resolved]
  - Vomiting [Recovered/Resolved]
  - Hypersomnia [Recovered/Resolved]

NARRATIVE: CASE EVENT DATE: 20210317
